FAERS Safety Report 7194400-7 (Version None)
Quarter: 2010Q4

REPORT INFORMATION
  Report Type: 
  Country: None (occurrence: None)
  Receive Date: 20101223
  Receipt Date: 20101213
  Transmission Date: 20110411
  Serious: Yes (Hospitalization, Other)
  Sender: FDA-Public Use
  Company Number: US-ELI_LILLY_AND_COMPANY-US201011002139

PATIENT
  Sex: Female
  Weight: 44.082 kg

DRUGS (14)
  1. SYMBYAX [Suspect]
     Indication: DEPRESSION
     Dosage: 1 D/F, EACH EVENING
     Route: 048
  2. SYMBYAX [Suspect]
     Dosage: 1 D/F, EACH EVENING
     Route: 048
  3. LANOXIN [Concomitant]
     Dosage: 0.125 MG, DAILY (1/D)
  4. CAPTOPRIL [Concomitant]
     Dosage: 25 MG, 2/D
  5. KLONOPIN [Concomitant]
     Dosage: 0.5 MG, EACH EVENING
     Route: 048
  6. ZOCOR [Concomitant]
     Dosage: 40 MG, EACH EVENING
     Route: 048
  7. LOPRESSOR [Concomitant]
     Dosage: 25 MG, 2/D
     Route: 048
  8. LASIX [Concomitant]
     Dosage: 20 MG, 3 TABLETS EVERY AM
     Route: 048
  9. COUMADIN [Concomitant]
     Dosage: 3 MG, EACH EVENING
  10. ASPIRIN [Concomitant]
     Dosage: 81 MG, DAILY (1/D)
  11. CALCIUM [Concomitant]
  12. FISH OIL [Concomitant]
  13. CLONIDINE HCL [Concomitant]
     Dosage: 0.1 MG, AS NEEDED
  14. ATIVAN [Concomitant]
     Dosage: 0.5 MG, AS NEEDED

REACTIONS (4)
  - APHASIA [None]
  - CEREBROVASCULAR ACCIDENT [None]
  - CONVULSION [None]
  - HEMIPARESIS [None]
